FAERS Safety Report 4999910-6 (Version None)
Quarter: 2006Q2

REPORT INFORMATION
  Report Type: 
  Country: None (occurrence: None)
  Receive Date: 20060509
  Receipt Date: 20060509
  Transmission Date: 20061013
  Serious: Yes (Hospitalization)
  Sender: FDA-Public Use
  Company Number: None

PATIENT
  Age: 61 Year
  Sex: Male
  Weight: 99.7913 kg

DRUGS (18)
  1. LEVOFLOXACIN [Suspect]
     Indication: SPINAL OPERATION
     Dosage: 500 MG   DAILY   PO
     Route: 048
     Dates: start: 20060329, end: 20060410
  2. DEXAMTHEASONE [Concomitant]
  3. DEXTROSE [Concomitant]
  4. DIAZEPAM [Concomitant]
  5. DIPHENHYDRAMINE HCL [Concomitant]
  6. DOCUSATE [Concomitant]
  7. ENOXAPARIN SODIUM [Concomitant]
  8. FOLIC ACID [Concomitant]
  9. GLUCAGON [Concomitant]
  10. INSULIN GLARGINE [Concomitant]
  11. LEVOFLOXACIN [Concomitant]
  12. LORAZEPAM [Concomitant]
  13. MORPHINE [Concomitant]
  14. M.V.I. [Concomitant]
  15. OMEPRAZOLE [Concomitant]
  16. OXYCODONE [Concomitant]
  17. TEMAZEPAM [Concomitant]
  18. CYCLOBENZAPRINE HCL [Concomitant]

REACTIONS (1)
  - DIARRHOEA [None]
